FAERS Safety Report 12060465 (Version 2)
Quarter: 2016Q2

REPORT INFORMATION
  Report Type: Report from Study
  Country: JP (occurrence: JP)
  Receive Date: 20160210
  Receipt Date: 20160520
  Transmission Date: 20160815
  Serious: Yes (Death, Life-Threatening)
  Sender: FDA-Public Use
  Company Number: JP-PFIZER INC-2016053031

PATIENT
  Age: 70 Year
  Sex: Female
  Weight: 45 kg

DRUGS (22)
  1. CRIZOTINIB [Suspect]
     Active Substance: CRIZOTINIB
     Indication: NON-SMALL CELL LUNG CANCER
     Dosage: 250 MG, 1X/DAY
     Route: 048
     Dates: start: 20140818, end: 20140818
  2. CRIZOTINIB [Suspect]
     Active Substance: CRIZOTINIB
     Dosage: 250 MG, 2X/DAY
     Route: 048
     Dates: start: 20140819, end: 20140919
  3. PRIMPERAN [Concomitant]
     Active Substance: METOCLOPRAMIDE HYDROCHLORIDE
     Indication: PROPHYLAXIS
     Dosage: 5 MG, 3X/DAY
     Route: 048
     Dates: start: 20140218, end: 20140919
  4. SENNOSIDE /00571901/ [Concomitant]
     Active Substance: SENNOSIDES A AND B
     Dosage: 24 MG, 1X/DAY
     Route: 048
     Dates: start: 20150702, end: 20150713
  5. CRAVIT [Concomitant]
     Active Substance: LEVOFLOXACIN
     Dosage: 0.5 %, 2X/DAY, BILATERALY, OPHTHALMICALLY
     Route: 047
     Dates: start: 20150304, end: 20150404
  6. PLAVIX [Concomitant]
     Active Substance: CLOPIDOGREL BISULFATE
     Indication: PROPHYLAXIS
     Dosage: 75 MG, 1X/DAY
     Route: 048
     Dates: start: 201504, end: 20150713
  7. MAGMITT [Concomitant]
     Active Substance: MAGNESIUM OXIDE
     Dosage: 660 MG, 3X/DAY
     Route: 048
     Dates: start: 20150703, end: 20150713
  8. NOVAMIN /00013301/ [Concomitant]
     Active Substance: PROCHLORPERAZINE MALEATE
     Indication: PROPHYLAXIS
     Dosage: 5 MG, 2X/DAY
     Route: 048
     Dates: start: 20150617, end: 20150704
  9. SENNOSIDE /00571901/ [Concomitant]
     Active Substance: SENNOSIDES A AND B
     Dosage: 24 MG, 1X/DAY
     Route: 048
     Dates: start: 20150107, end: 20150602
  10. AMITIZA [Concomitant]
     Active Substance: LUBIPROSTONE
     Indication: PROPHYLAXIS
     Dosage: 24 MG, 1X/DAY
     Route: 048
     Dates: start: 20150603, end: 20150616
  11. PRIMPERAN [Concomitant]
     Active Substance: METOCLOPRAMIDE HYDROCHLORIDE
     Dosage: 5 MG, 3X/DAY
     Route: 048
     Dates: start: 20141010, end: 20150522
  12. LENDORMIN [Concomitant]
     Active Substance: BROTIZOLAM
     Dosage: 0.25 MG, 1X/DAY
     Route: 048
     Dates: start: 20150303, end: 20150404
  13. CRIZOTINIB [Suspect]
     Active Substance: CRIZOTINIB
     Dosage: 200 MG, 1X/DAY
     Route: 048
     Dates: start: 20141010, end: 20141010
  14. SENNOSIDE /00571901/ [Concomitant]
     Active Substance: SENNOSIDES A AND B
     Indication: PROPHYLAXIS
     Dosage: 24 MG, 1X/DAY
     Route: 048
     Dates: start: 20140912, end: 20140918
  15. NAUZELIN [Concomitant]
     Active Substance: DOMPERIDONE
     Indication: PROPHYLAXIS
     Dosage: 10 MG, 3X/DAY
     Route: 048
     Dates: start: 20150522, end: 20150713
  16. MAGMITT [Concomitant]
     Active Substance: MAGNESIUM OXIDE
     Dosage: 330 MG, 3X/DAY
     Route: 048
     Dates: start: 20150701, end: 20150702
  17. CRIZOTINIB [Suspect]
     Active Substance: CRIZOTINIB
     Dosage: 200 MG, 2X/DAY
     Route: 048
     Dates: start: 20141011, end: 20150404
  18. DECADRON [Concomitant]
     Active Substance: DEXAMETHASONE
     Dosage: 2 MG, 1X/DAY
     Route: 048
     Dates: start: 20150318, end: 20150404
  19. AMLODIN [Concomitant]
     Active Substance: AMLODIPINE BESYLATE
     Dosage: 2.5 MG, 1X/DAY
     Route: 048
     Dates: start: 20150226, end: 20150404
  20. CRIZOTINIB [Suspect]
     Active Substance: CRIZOTINIB
     Dosage: 200 MG, 2X/DAY
     Route: 048
     Dates: start: 20150501, end: 20150703
  21. LANSOPRAZOLE. [Concomitant]
     Active Substance: LANSOPRAZOLE
     Indication: PROPHYLAXIS
     Dosage: 15 MG, 1X/DAY
     Route: 048
     Dates: start: 20150301, end: 20150404
  22. MAGMITT [Concomitant]
     Active Substance: MAGNESIUM OXIDE
     Indication: PROPHYLAXIS
     Dosage: 250 MG, 3X/DAY
     Route: 048
     Dates: start: 20150603, end: 20150630

REACTIONS (3)
  - Cerebral infarction [Recovered/Resolved with Sequelae]
  - Non-small cell lung cancer [Fatal]
  - Disease progression [Fatal]

NARRATIVE: CASE EVENT DATE: 20150404
